FAERS Safety Report 8442937-2 (Version None)
Quarter: 2012Q2

REPORT INFORMATION
  Report Type: 
  Country: None (occurrence: None)
  Receive Date: 20120615
  Receipt Date: 20120604
  Transmission Date: 20120825
  Serious: No
  Sender: FDA-Public Use
  Company Number: US-ASTRAZENECA-2012SE37257

PATIENT
  Age: 69 Year
  Sex: Female
  Weight: 165.1 kg

DRUGS (7)
  1. LEVOTHYROXINE SODIUM [Concomitant]
  2. LORATADINE [Concomitant]
  3. LISINOPRIL AND HYDROCHLOROTHIAZIDE [Suspect]
     Route: 048
  4. SYMBICORT [Suspect]
     Indication: DYSPNOEA
     Dosage: 160/4.5 MCG, TWO PUFFS, TWO TIMES A DAY
     Route: 055
     Dates: start: 20120601
  5. PRAVASTATIN [Concomitant]
  6. CYMBALTA [Concomitant]
  7. ROPINIROLE [Concomitant]

REACTIONS (3)
  - DYSPNOEA [None]
  - DIZZINESS [None]
  - FEELING DRUNK [None]
